FAERS Safety Report 20608319 (Version 1)
Quarter: 2022Q1

REPORT INFORMATION
  Report Type: Spontaneous
  Country: US (occurrence: US)
  Receive Date: 20220317
  Receipt Date: 20220317
  Transmission Date: 20220423
  Serious: Yes (Other)
  Sender: FDA-Public Use
  Company Number: US-INSUD PHARMA-2203US00981

PATIENT

DRUGS (2)
  1. TESTOSTERONE [Suspect]
     Active Substance: TESTOSTERONE
     Indication: Transgender hormonal therapy
     Dosage: DOSE INCREASED ACCORDING TO PROVIDER^S GAHT PROTOCOL
     Route: 058
  2. TESTOSTERONE [Suspect]
     Active Substance: TESTOSTERONE
     Dosage: 0.125 MILLIGRAM, WEEKLY
     Route: 058

REACTIONS (7)
  - Acne fulminans [Recovering/Resolving]
  - Dermal cyst [Recovering/Resolving]
  - Acne [Recovering/Resolving]
  - Acne cystic [Recovering/Resolving]
  - Acne pustular [Recovering/Resolving]
  - Erythema [Recovering/Resolving]
  - Scar [Not Recovered/Not Resolved]
